FAERS Safety Report 8855439 (Version 1)
Quarter: 2012Q4

REPORT INFORMATION
  Report Type: 
  Country: US (occurrence: US)
  Receive Date: 20121023
  Receipt Date: 20121023
  Transmission Date: 20130627
  Serious: No
  Sender: FDA-Public Use
  Company Number: US-AMGEN-USASP2012058501

PATIENT
  Age: 42 Year
  Sex: Female
  Weight: 104.31 kg

DRUGS (6)
  1. ENBREL [Suspect]
     Indication: PRODUCT USED FOR UNKNOWN INDICATION
     Dosage: 50 mg, qwk
     Route: 058
  2. OXYCONTIN [Concomitant]
     Dosage: 15 mg, UNK
  3. METHOTREXATE [Concomitant]
     Dosage: 2.5 mg, UNK
  4. MELOXICAM [Concomitant]
     Dosage: 15 mg, UNK
  5. ZANAFLEX [Concomitant]
     Dosage: 4 mg, UNK
  6. FOLIC ACID [Concomitant]
     Dosage: 1 mg, UNK

REACTIONS (1)
  - Herpes zoster [Recovered/Resolved]
